FAERS Safety Report 19752619 (Version 1)
Quarter: 2021Q3

REPORT INFORMATION
  Report Type: Spontaneous
  Country: JP (occurrence: JP)
  Receive Date: 20210827
  Receipt Date: 20210827
  Transmission Date: 20211014
  Serious: Yes (Hospitalization, Other)
  Sender: FDA-Public Use
  Company Number: JP-APOTEX-2021AP039459

PATIENT
  Age: 30 Year
  Sex: Female

DRUGS (1)
  1. PAXIL [Suspect]
     Active Substance: PAROXETINE HYDROCHLORIDE
     Indication: OBSESSIVE-COMPULSIVE DISORDER
     Dosage: 50 MILLIGRAM
     Route: 065

REACTIONS (6)
  - Delusion [Unknown]
  - Activation syndrome [Unknown]
  - Impulsive behaviour [Unknown]
  - Schizophrenia [Unknown]
  - Fracture [Unknown]
  - Agitation [Unknown]
